FAERS Safety Report 8313043-2 (Version None)
Quarter: 2012Q2

REPORT INFORMATION
  Report Type: 
  Country: None (occurrence: None)
  Receive Date: 20120424
  Receipt Date: 20120411
  Transmission Date: 20120825
  Serious: Yes (Death)
  Sender: FDA-Public Use
  Company Number: MCA-N-12-030

PATIENT
  Age: 55 Year
  Sex: Female

DRUGS (2)
  1. VENLAFAXINE HCL [Suspect]
     Indication: MENTAL DISORDER
  2. MIRTAZAPINE [Concomitant]

REACTIONS (5)
  - CEREBRAL HAEMORRHAGE [None]
  - WRONG TECHNIQUE IN DRUG USAGE PROCESS [None]
  - BRAIN OEDEMA [None]
  - OVERDOSE [None]
  - TOXICITY TO VARIOUS AGENTS [None]
